FAERS Safety Report 21973448 (Version 8)
Quarter: 2025Q1

REPORT INFORMATION
  Report Type: Spontaneous
  Country: DO (occurrence: DO)
  Receive Date: 20230209
  Receipt Date: 20250107
  Transmission Date: 20250409
  Serious: No
  Sender: PFIZER
  Company Number: DO-PFIZER INC-PV202300020997

PATIENT
  Age: 17 Year
  Sex: Male

DRUGS (2)
  1. GENOTROPIN [Suspect]
     Active Substance: SOMATROPIN
     Indication: Growth hormone deficiency
     Dosage: 1.6 MG, 1X/DAY
     Dates: start: 20220325
  2. GENOTROPIN [Suspect]
     Active Substance: SOMATROPIN
     Dosage: 1.6 MG, 1X/DAY
     Dates: start: 2022

REACTIONS (7)
  - Device dislocation [Unknown]
  - Device information output issue [Unknown]
  - Device mechanical issue [Unknown]
  - Drug dose omission by device [Unknown]
  - Expired device used [Unknown]
  - Device power source issue [Unknown]
  - Device malfunction [Unknown]
